FAERS Safety Report 9486173 (Version 1)
Quarter: 2013Q3

REPORT INFORMATION
  Report Type: Spontaneous
  Country: US (occurrence: US)
  Receive Date: 20130829
  Receipt Date: 20130829
  Transmission Date: 20140515
  Serious: No
  Sender: FDA-Public Use
  Company Number: US-GLAXOSMITHKLINE-A1012253A

PATIENT
  Age: 33 Year
  Sex: Female
  Weight: 58 kg

DRUGS (7)
  1. MALARONE [Suspect]
     Indication: MALARIA PROPHYLAXIS
     Route: 048
     Dates: start: 20130131, end: 20130214
  2. SUNSCREEN [Suspect]
     Indication: PROPHYLAXIS
  3. UNKNOWN [Suspect]
     Indication: PRODUCT USED FOR UNKNOWN INDICATION
  4. BIRTH CONTROL PILLS [Concomitant]
  5. SUDAFED [Concomitant]
  6. ASTELIN [Concomitant]
     Route: 045
  7. STEROID CREAM [Concomitant]
     Route: 061

REACTIONS (3)
  - Rash [Recovering/Resolving]
  - Stomatitis [Unknown]
  - Glossodynia [Not Recovered/Not Resolved]
